FAERS Safety Report 19517286 (Version 2)
Quarter: 2021Q3

REPORT INFORMATION
  Report Type: Report from Study
  Country: DE (occurrence: DE)
  Receive Date: 20210712
  Receipt Date: 20210913
  Transmission Date: 20211014
  Serious: Yes (Congenital Anomaly)
  Sender: FDA-Public Use
  Company Number: DE-BIOGEN-2021BI01028423

PATIENT

DRUGS (3)
  1. PLEGRIDY [Suspect]
     Active Substance: PEGINTERFERON BETA-1A
     Indication: PRODUCT USED FOR UNKNOWN INDICATION
     Route: 064
     Dates: start: 20150115, end: 20160113
  2. VITAMIN K [Concomitant]
     Active Substance: PHYTONADIONE
     Indication: PROPHYLAXIS
     Route: 048
  3. VIGANTOLETTEN [Concomitant]
     Active Substance: CHOLECALCIFEROL
     Indication: PRODUCT USED FOR UNKNOWN INDICATION
     Route: 065
     Dates: start: 20161029

REACTIONS (2)
  - Cardiac septal defect [Unknown]
  - Foetal exposure during pregnancy [Unknown]
